FAERS Safety Report 7658178-2 (Version None)
Quarter: 2011Q3

REPORT INFORMATION
  Report Type: 
  Country: None (occurrence: None)
  Receive Date: 20110802
  Receipt Date: 20110718
  Transmission Date: 20111222
  Serious: Yes (Disabling, Other)
  Sender: FDA-Public Use
  Company Number: 09-AUR-10073

PATIENT
  Age: 78 Year
  Sex: Male

DRUGS (4)
  1. WARFARIN SODIUM [Concomitant]
  2. SIMVASTATIN [Suspect]
     Indication: PRODUCT USED FOR UNKNOWN INDICATION
     Dosage: 40 MG, 1 D
     Dates: start: 20051101
  3. ZOLADEX [Concomitant]
  4. ITRACONAZOLE [Suspect]
     Indication: BRONCHOPULMONARY ASPERGILLOSIS
     Dates: start: 20051201

REACTIONS (10)
  - POLYNEUROPATHY [None]
  - BRONCHOPULMONARY ASPERGILLOSIS [None]
  - MYOPATHY [None]
  - MYALGIA [None]
  - ABASIA [None]
  - BLOOD CREATINE PHOSPHOKINASE INCREASED [None]
  - MUSCULAR WEAKNESS [None]
  - UBIQUINONE DECREASED [None]
  - TOXICITY TO VARIOUS AGENTS [None]
  - MUSCLE CONTRACTIONS INVOLUNTARY [None]
